FAERS Safety Report 4843880-8 (Version None)
Quarter: 2005Q4

REPORT INFORMATION
  Report Type: 
  Country: None (occurrence: None)
  Receive Date: 20051130
  Receipt Date: 20051130
  Transmission Date: 20060501
  Serious: Yes (Hospitalization, Disabling)
  Sender: FDA-Public Use
  Company Number: None

PATIENT
  Age: 74 Year
  Sex: Female
  Weight: 74 kg

DRUGS (1)
  1. CEREBYX [Suspect]
     Indication: CONVULSION
     Dosage: 200 MG   Q12H    IV;   100 MG  Q8H   IV
     Route: 042
     Dates: start: 20050915, end: 20050929

REACTIONS (1)
  - LIVER FUNCTION TEST ABNORMAL [None]
